FAERS Safety Report 5215793-3 (Version None)
Quarter: 2007Q1

REPORT INFORMATION
  Report Type: 
  Country: None (occurrence: None)
  Receive Date: 20070118
  Receipt Date: 20061124
  Transmission Date: 20070707
  Serious: Yes (Hospitalization)
  Sender: FDA-Public Use
  Company Number: 3828

PATIENT
  Age: 67 Year
  Sex: Female

DRUGS (3)
  1. CLARITHROMYCIN [Suspect]
     Indication: UPPER RESPIRATORY TRACT INFECTION
  2. NIFEDIPINE [Concomitant]
  3. TICLOPIDINE (TICLOPIDINE) [Concomitant]

REACTIONS (7)
  - ABNORMAL BEHAVIOUR [None]
  - BLOOD THYROID STIMULATING HORMONE DECREASED [None]
  - CEREBRAL ISCHAEMIA [None]
  - ENCEPHALOMALACIA [None]
  - IDEAS OF REFERENCE [None]
  - LOGORRHOEA [None]
  - NORMOCHROMIC NORMOCYTIC ANAEMIA [None]
